FAERS Safety Report 13854792 (Version 1)
Quarter: 2017Q3

REPORT INFORMATION
  Report Type: Spontaneous
  Country: DE (occurrence: DE)
  Receive Date: 20170810
  Receipt Date: 20170810
  Transmission Date: 20171127
  Serious: Yes (Other)
  Sender: FDA-Public Use
  Company Number: DE-ASTRAZENECA-2017SE80622

PATIENT
  Sex: Female

DRUGS (4)
  1. CITALOPRAM [Interacting]
     Active Substance: CITALOPRAM HYDROBROMIDE
     Route: 065
  2. LYNPARZA [Interacting]
     Active Substance: OLAPARIB
     Route: 048
     Dates: start: 20170626
  3. LYNPARZA [Suspect]
     Active Substance: OLAPARIB
     Route: 048
     Dates: start: 20170626
  4. CITALOPRAM [Interacting]
     Active Substance: CITALOPRAM HYDROBROMIDE
     Route: 065

REACTIONS (6)
  - Peripheral swelling [Unknown]
  - Swelling face [Unknown]
  - Haemoglobin decreased [Unknown]
  - Drug interaction [Unknown]
  - Decreased appetite [Unknown]
  - Blood creatinine increased [Unknown]
